FAERS Safety Report 4266651-2 (Version None)
Quarter: 2004Q1

REPORT INFORMATION
  Report Type: 
  Country: None (occurrence: None)
  Receive Date: 20040108
  Receipt Date: 20040108
  Transmission Date: 20041129
  Serious: Yes (Hospitalization)
  Sender: FDA-Public Use
  Company Number: None

PATIENT
  Age: 65 Year
  Sex: Male
  Weight: 92.9874 kg

DRUGS (8)
  1. VANCOMYCIN [Suspect]
     Indication: CELLULITIS
     Dosage: 1 G IV Q12HOURS
     Route: 042
     Dates: start: 20031029, end: 20031105
  2. COUMADIN [Concomitant]
  3. TRIAM/HCTZ [Concomitant]
  4. OXYCONTIN [Concomitant]
  5. PERCOCET [Concomitant]
  6. K+ SUPPLEMENT [Concomitant]
  7. SENNA PLUS [Concomitant]
  8. PROTONIX [Concomitant]

REACTIONS (1)
  - HYPERSENSITIVITY [None]
